FAERS Safety Report 24897175 (Version 2)
Quarter: 2025Q1

REPORT INFORMATION
  Report Type: Spontaneous
  Country: CN (occurrence: CN)
  Receive Date: 20250128
  Receipt Date: 20250207
  Transmission Date: 20250409
  Serious: Yes (Hospitalization)
  Sender: NOVARTIS
  Company Number: CN-002147023-NVSC2024CN238504

PATIENT
  Sex: Female

DRUGS (2)
  1. DIOVAN [Suspect]
     Active Substance: VALSARTAN
     Indication: Hypertension
     Dosage: 1 DOSAGE FORM, QD (PILL)
     Route: 048
     Dates: start: 20241205, end: 20241211
  2. DIOVAN [Suspect]
     Active Substance: VALSARTAN
     Route: 065

REACTIONS (4)
  - Bradycardia [Unknown]
  - Extrasystoles [Recovering/Resolving]
  - Blood pressure increased [Recovering/Resolving]
  - Myocardial fibrosis [Unknown]

NARRATIVE: CASE EVENT DATE: 20241208
